FAERS Safety Report 20826537 (Version 7)
Quarter: 2022Q4

REPORT INFORMATION
  Report Type: Spontaneous
  Country: US (occurrence: US)
  Receive Date: 20220513
  Receipt Date: 20221109
  Transmission Date: 20230112
  Serious: Yes (Other)
  Sender: FDA-Public Use
  Company Number: US-BAYER-2022A066073

PATIENT
  Age: 60 Year
  Sex: Male

DRUGS (22)
  1. JIVI [Suspect]
     Active Substance: DAMOCTOCOG ALFA PEGOL
     Indication: Haemorrhage
     Dosage: 5000 IU TWICE A WEEK (MONDAY AND THURSDAY) AS PRN
  2. JIVI [Suspect]
     Active Substance: DAMOCTOCOG ALFA PEGOL
     Indication: Haemorrhage
     Dosage: 1 DF, FOR THE LEFT WRIST BLEED TREATMENT
  3. JIVI [Suspect]
     Active Substance: DAMOCTOCOG ALFA PEGOL
     Indication: Haemorrhage
     Dosage: 1 DF, FOR THE LEFT ANKLE BLEED TREATMENT
  4. JIVI [Suspect]
     Active Substance: DAMOCTOCOG ALFA PEGOL
     Indication: Haemorrhage
     Dosage: 1 DF, FOR THE RIGHT TOE BLEED TREATMENT
  5. JIVI [Suspect]
     Active Substance: DAMOCTOCOG ALFA PEGOL
     Indication: Haemorrhage
     Dosage: 1 DF, FOR THE LEFT ANKLE BLEED TREATMENT
     Dates: start: 20220513, end: 20220513
  6. JIVI [Suspect]
     Active Substance: DAMOCTOCOG ALFA PEGOL
     Indication: Haemorrhage
     Dosage: 1 DF, FOR THE RIGHT ANKLE BLEED TREATMENT
     Dates: start: 20220520, end: 20220520
  7. JIVI [Suspect]
     Active Substance: DAMOCTOCOG ALFA PEGOL
     Indication: Haemorrhage
     Dosage: 2 DF, FOR THE RIGHT KNEE BLEED TREATMENT
     Dates: start: 20220527, end: 20220527
  8. JIVI [Suspect]
     Active Substance: DAMOCTOCOG ALFA PEGOL
     Indication: Haemorrhage
     Dosage: 1 DF, FOR THE RIGHT THUMB BLEED TREATMENT
     Dates: start: 20220603, end: 20220603
  9. JIVI [Suspect]
     Active Substance: DAMOCTOCOG ALFA PEGOL
     Indication: Haemorrhage
     Dosage: 2 DF, FOR THE LEFT ELBOW BLEED TREATMENT
     Dates: start: 20220610, end: 20220610
  10. JIVI [Suspect]
     Active Substance: DAMOCTOCOG ALFA PEGOL
     Indication: Haemorrhage
     Dosage: 1 DF, FOR THE RIGHT ANKLE AND RIGHT TOE BLEEDS TREATMENT
  11. JIVI [Suspect]
     Active Substance: DAMOCTOCOG ALFA PEGOL
     Indication: Haemorrhage
     Dosage: 2 DF, FOR THE ELBOW BLEED TREATMENT
  12. JIVI [Suspect]
     Active Substance: DAMOCTOCOG ALFA PEGOL
     Indication: Haemorrhage
     Dosage: 3 DF, FOR THE RIGHT KNEE BLEED
     Route: 042
     Dates: start: 20220804, end: 202208
  13. JIVI [Suspect]
     Active Substance: DAMOCTOCOG ALFA PEGOL
     Indication: Haemorrhage
     Dosage: 2 DF, FOR THE LEFT ANKLE BLEED
     Route: 042
     Dates: start: 20220811, end: 202208
  14. JIVI [Suspect]
     Active Substance: DAMOCTOCOG ALFA PEGOL
     Indication: Haemorrhage
     Dosage: 2 DF, FOR THE RIGHT ELBOW BLEED
     Route: 042
     Dates: start: 20220818, end: 202208
  15. JIVI [Suspect]
     Active Substance: DAMOCTOCOG ALFA PEGOL
     Indication: Haemorrhage
     Dosage: 1 DF, FOR THE LEFT TOE BLEED TREATMENT
     Dates: start: 20220830, end: 20220830
  16. JIVI [Suspect]
     Active Substance: DAMOCTOCOG ALFA PEGOL
     Indication: Haemorrhage
     Dosage: 1 DF, FOR THE LEFT ANKLE BLEED TREATMENT
     Dates: start: 20220914, end: 20220914
  17. JIVI [Suspect]
     Active Substance: DAMOCTOCOG ALFA PEGOL
     Indication: Haemorrhage
     Dosage: 1 DF, FOR THE LEFT ELBOW BLEED TREATMENT
     Dates: start: 20220921, end: 20220921
  18. JIVI [Suspect]
     Active Substance: DAMOCTOCOG ALFA PEGOL
     Indication: Haemorrhage
     Dosage: 2 DF, FOR THE SHOULDER BLEED TREATMENT
     Dates: start: 20220924, end: 20220924
  19. JIVI [Suspect]
     Active Substance: DAMOCTOCOG ALFA PEGOL
     Indication: Haemorrhage
     Dosage: 1 DF, FOR THE RIGHT MIDDLE FINGERS BLEED
     Dates: start: 2022, end: 2022
  20. JIVI [Suspect]
     Active Substance: DAMOCTOCOG ALFA PEGOL
     Indication: Haemorrhage
     Dosage: 1 DF, FOR THE LEFT TOE BLEED
     Dates: start: 2022, end: 2022
  21. JIVI [Suspect]
     Active Substance: DAMOCTOCOG ALFA PEGOL
     Indication: Haemorrhage
     Dosage: 1 DF, FOR THE LEFT ELBOW BLEED
     Dates: start: 2022, end: 2022
  22. JIVI [Suspect]
     Active Substance: DAMOCTOCOG ALFA PEGOL
     Indication: Haemorrhage
     Dosage: 2 DF, FOR THE LEFT ANKLE BLEED
     Dates: start: 2022, end: 2022

REACTIONS (22)
  - Haemarthrosis [None]
  - Haemorrhage [None]
  - Haemarthrosis [None]
  - Haemarthrosis [Recovered/Resolved]
  - Haemarthrosis [Recovered/Resolved]
  - Haemarthrosis [Recovered/Resolved]
  - Haemorrhage [None]
  - Haemarthrosis [None]
  - Haemarthrosis [None]
  - Haemorrhage [None]
  - Haemarthrosis [None]
  - Haemarthrosis [Recovered/Resolved]
  - Haemarthrosis [Recovered/Resolved]
  - Haemarthrosis [Recovered/Resolved]
  - Haemorrhage [Recovered/Resolved]
  - Haemarthrosis [Recovered/Resolved]
  - Haemarthrosis [Recovered/Resolved]
  - Haemarthrosis [Recovered/Resolved]
  - Haemarthrosis [Recovered/Resolved]
  - Haemorrhage [Recovered/Resolved]
  - Haemarthrosis [Recovered/Resolved]
  - Haemarthrosis [Recovered/Resolved]

NARRATIVE: CASE EVENT DATE: 20220101
